FAERS Safety Report 5289515-4 (Version None)
Quarter: 2007Q2

REPORT INFORMATION
  Report Type: 
  Country: None (occurrence: None)
  Receive Date: 20070406
  Receipt Date: 20070329
  Transmission Date: 20071010
  Serious: Yes (Other)
  Sender: FDA-Public Use
  Company Number: US-AMGEN-US217578

PATIENT
  Age: 67 Year
  Sex: Female
  Weight: 43.1 kg

DRUGS (1)
  1. PROCRIT [Suspect]
     Indication: MYELODYSPLASTIC SYNDROME
     Route: 065
     Dates: start: 20070101, end: 20070301

REACTIONS (1)
  - ISCHAEMIC STROKE [None]
